FAERS Safety Report 25926212 (Version 1)
Quarter: 2025Q4

REPORT INFORMATION
  Report Type: Spontaneous
  Country: US (occurrence: None)
  Receive Date: 20251014
  Receipt Date: 20251014
  Transmission Date: 20260118
  Serious: No
  Sender: FDA-CTU
  Company Number: None

PATIENT
  Age: 40 Year
  Sex: Female
  Weight: 80.55 kg

DRUGS (3)
  1. ZOLEDRONIC ACID [Suspect]
     Active Substance: ZOLEDRONIC ACID
     Dates: start: 20251008, end: 20251008
  2. Methimozale [Concomitant]
  3. VITAMINS [Concomitant]
     Active Substance: VITAMINS

REACTIONS (16)
  - Infusion related reaction [None]
  - Myalgia [None]
  - Painful respiration [None]
  - Pain [None]
  - Insomnia [None]
  - Pain [None]
  - Arthralgia [None]
  - Pain in extremity [None]
  - Dysstasia [None]
  - Gait disturbance [None]
  - Joint stiffness [None]
  - Diarrhoea [None]
  - Chills [None]
  - Arthralgia [None]
  - Arthralgia [None]
  - Joint swelling [None]

NARRATIVE: CASE EVENT DATE: 20251008
